FAERS Safety Report 16818096 (Version 1)
Quarter: 2019Q3

REPORT INFORMATION
  Report Type: Spontaneous
  Country: FR (occurrence: FR)
  Receive Date: 20190917
  Receipt Date: 20190917
  Transmission Date: 20191005
  Serious: Yes (Life-Threatening)
  Sender: FDA-Public Use
  Company Number: FR-MYLANLABS-2019M1086787

PATIENT
  Age: 57 Year
  Sex: Male

DRUGS (7)
  1. DEXAMETHASONE MYLAN [Suspect]
     Active Substance: DEXAMETHASONE
     Indication: ANAESTHESIA
     Dosage: 8 MILLIGRAM, TOTAL
     Route: 042
     Dates: start: 20190411, end: 20190411
  2. ESMERON [Suspect]
     Active Substance: ROCURONIUM BROMIDE
     Indication: ANAESTHESIA
     Dosage: 60 MILLIGRAM, TOTAL
     Route: 042
     Dates: start: 20190411, end: 20190411
  3. KETAMINE [Suspect]
     Active Substance: KETAMINE
     Indication: ANAESTHESIA
     Dosage: 40 MILLIGRAM, TOTAL
     Route: 042
     Dates: start: 20190411, end: 20190411
  4. SUFENTA [Suspect]
     Active Substance: SUFENTANIL CITRATE
     Indication: ANAESTHESIA
     Dosage: UNK
     Route: 042
     Dates: start: 20190411, end: 20190411
  5. DROLEPTAN [Suspect]
     Active Substance: DROPERIDOL
     Indication: ANAESTHESIA
     Dosage: 1.25 MILLIGRAM, TOTAL
     Route: 042
     Dates: start: 20190411, end: 20190411
  6. DIPRIVAN [Suspect]
     Active Substance: PROPOFOL
     Indication: ANAESTHESIA
     Dosage: 150 MILLIGRAM, TOTAL
     Route: 042
     Dates: start: 20190411, end: 20190411
  7. XYLOCAINE [Suspect]
     Active Substance: LIDOCAINE HYDROCHLORIDE
     Indication: ANAESTHESIA
     Dosage: 50 MILLIGRAM, QD
     Route: 042
     Dates: start: 20190411, end: 20190411

REACTIONS (1)
  - Anaphylactic shock [Recovering/Resolving]

NARRATIVE: CASE EVENT DATE: 20190411
